FAERS Safety Report 8515105-3 (Version None)
Quarter: 2012Q3

REPORT INFORMATION
  Report Type: 
  Country: None (occurrence: None)
  Receive Date: 20120717
  Receipt Date: 20120716
  Transmission Date: 20120928
  Serious: Yes (Other)
  Sender: FDA-Public Use
  Company Number: US-PFIZER INC-2012171346

PATIENT
  Sex: Male
  Weight: 63.946 kg

DRUGS (2)
  1. XANAX [Suspect]
     Indication: COLITIS
  2. XANAX [Suspect]
     Indication: PANIC DISORDER
     Dosage: 1 MG, 4X/DAY
     Route: 048
     Dates: start: 19900101

REACTIONS (3)
  - COLONIC OBSTRUCTION [None]
  - LARGE INTESTINE PERFORATION [None]
  - DIVERTICULITIS [None]
